FAERS Safety Report 17166175 (Version 1)
Quarter: 2019Q4

REPORT INFORMATION
  Report Type: Spontaneous
  Country: JP (occurrence: JP)
  Receive Date: 20191217
  Receipt Date: 20191217
  Transmission Date: 20200122
  Serious: Yes (Hospitalization, Other)
  Sender: FDA-Public Use
  Company Number: JP-GLAXOSMITHKLINE-JP2019JPN224099

PATIENT
  Age: 41 Year
  Sex: Female

DRUGS (2)
  1. PREDNISOLONE. [Concomitant]
     Active Substance: PREDNISOLONE
     Indication: DRUG REACTION WITH EOSINOPHILIA AND SYSTEMIC SYMPTOMS
     Dosage: 50 MG
     Route: 048
  2. LAMICTAL [Suspect]
     Active Substance: LAMOTRIGINE
     Indication: SCHIZOPHRENIA
     Dosage: UNK
     Route: 048

REACTIONS (12)
  - Hepatic function abnormal [Recovered/Resolved]
  - Rash [Recovered/Resolved]
  - Disseminated intravascular coagulation [Recovering/Resolving]
  - Platelet count decreased [Unknown]
  - Pruritus [Unknown]
  - Coagulopathy [Unknown]
  - Product use in unapproved indication [Unknown]
  - Pyrexia [Recovered/Resolved]
  - White blood cell count decreased [Unknown]
  - Drug reaction with eosinophilia and systemic symptoms [Unknown]
  - Multi-organ disorder [Unknown]
  - Erythema [Unknown]
